FAERS Safety Report 12076586 (Version 1)
Quarter: 2016Q1

REPORT INFORMATION
  Report Type: Spontaneous
  Country: IT (occurrence: IT)
  Receive Date: 20160215
  Receipt Date: 20160215
  Transmission Date: 20160526
  Serious: Yes (Death, Other)
  Sender: FDA-Public Use
  Company Number: PHHY2016IT019186

PATIENT
  Age: 49 Year
  Sex: Male

DRUGS (4)
  1. ZOLEDRONATE [Suspect]
     Active Substance: ZOLEDRONIC ACID
     Indication: METASTATIC RENAL CELL CARCINOMA
     Dosage: UNK
     Route: 065
  2. EVEROLIMUS [Suspect]
     Active Substance: EVEROLIMUS
     Indication: METASTATIC RENAL CELL CARCINOMA
     Dosage: 10 MG, QD
     Route: 048
  3. SORAFENIB [Suspect]
     Active Substance: SORAFENIB
     Indication: METASTATIC RENAL CELL CARCINOMA
     Dosage: 800 MG, QD
     Route: 065
  4. LAMIVUDINE. [Concomitant]
     Active Substance: LAMIVUDINE
     Indication: HEPATITIS B VIRUS TEST POSITIVE
     Dosage: 100 MG, QD
     Route: 065

REACTIONS (7)
  - Malignant neoplasm progression [Fatal]
  - Fatigue [Unknown]
  - Shrinking lung syndrome [Unknown]
  - Metastases to central nervous system [Fatal]
  - Metastases to bone [Fatal]
  - Interstitial lung disease [Unknown]
  - Metastases to lung [Fatal]

NARRATIVE: CASE EVENT DATE: 201010
